FAERS Safety Report 17849765 (Version 1)
Quarter: 2020Q2

REPORT INFORMATION
  Report Type: Spontaneous
  Country: US (occurrence: US)
  Receive Date: 20200602
  Receipt Date: 20200602
  Transmission Date: 20200714
  Serious: No
  Sender: FDA-Public Use
  Company Number: US-PFIZER INC-2020214474

PATIENT
  Age: 66 Year
  Sex: Female
  Weight: 90.72 kg

DRUGS (2)
  1. PRISTIQ EXTENDED-RELEASE [Suspect]
     Active Substance: DESVENLAFAXINE SUCCINATE
     Indication: DEPRESSION
     Dosage: 150 MG, DAILY(TAKE BOTH PILLS IN THE MORNING; ONE 50MG AND ONE 100MG)
     Dates: start: 2019
  2. LYRICA [Interacting]
     Active Substance: PREGABALIN
     Indication: DEPRESSION
     Dosage: UNK

REACTIONS (1)
  - Drug interaction [Unknown]
